FAERS Safety Report 5456932-9 (Version None)
Quarter: 2007Q3

REPORT INFORMATION
  Report Type: 
  Country: None (occurrence: None)
  Receive Date: 20070918
  Receipt Date: 20070906
  Transmission Date: 20080115
  Serious: Yes (Hospitalization)
  Sender: FDA-Public Use
  Company Number: US-PFIZER INC-2007062635

PATIENT
  Age: 71 Year
  Sex: Female

DRUGS (5)
  1. EXUBERA [Suspect]
     Indication: DIABETES MELLITUS
  2. INSULIN DETEMIR [Concomitant]
     Dosage: TEXT:50 UNITS
     Route: 058
  3. NOVOLOG [Concomitant]
     Dosage: FREQ:AT SUPPER
  4. NOVOLOG MIX 70/30 [Concomitant]
     Dosage: FREQ:BEFORE BREAKFAST
  5. NPH INSULIN [Concomitant]
     Dosage: FREQ:AT BEDTIME

REACTIONS (7)
  - ABDOMINAL PAIN UPPER [None]
  - CHEST PAIN [None]
  - DIASTOLIC DYSFUNCTION [None]
  - DYSPNOEA [None]
  - HYPERHIDROSIS [None]
  - NAUSEA [None]
  - VOMITING [None]
